FAERS Safety Report 23873106 (Version 3)
Quarter: 2024Q3

REPORT INFORMATION
  Report Type: Spontaneous
  Country: PT (occurrence: PT)
  Receive Date: 20240520
  Receipt Date: 20240706
  Transmission Date: 20241017
  Serious: Yes (Other)
  Sender: AUROBINDO
  Company Number: PT-AUROBINDO-AUR-APL-2024-023584

PATIENT
  Age: 47 Year
  Sex: Female

DRUGS (5)
  1. ERTAPENEM [Suspect]
     Active Substance: ERTAPENEM
     Indication: Bacteraemia
     Dosage: 1 GRAM, ONCE A DAY
     Route: 065
  2. AMOXICILLIN\CLAVULANIC ACID [Suspect]
     Active Substance: AMOXICILLIN\CLAVULANIC ACID
     Indication: Product used for unknown indication
     Dosage: 3.6 GRAM, ONCE A DAY (1.2 GRAM, 3 TIMES A DAY)
     Route: 065
  3. COTRIMOXAZOLE [Suspect]
     Active Substance: SULFAMETHOXAZOLE\TRIMETHOPRIM
     Indication: Antibiotic prophylaxis
     Dosage: 960 MILLIGRAM, TWO TIMES A DAY
     Route: 065
  4. COTRIMOXAZOLE [Suspect]
     Active Substance: SULFAMETHOXAZOLE\TRIMETHOPRIM
     Indication: Bacteraemia
  5. AMPICILLIN [Suspect]
     Active Substance: AMPICILLIN
     Indication: Bacteraemia
     Dosage: 2 GRAM 4 HOURS FOR 28 DAYS THERAPY
     Route: 065

REACTIONS (4)
  - Bacteraemia [Unknown]
  - Drug resistance [Unknown]
  - Pathogen resistance [Unknown]
  - Product use in unapproved indication [Unknown]
